FAERS Safety Report 7085682-0 (Version None)
Quarter: 2010Q4

REPORT INFORMATION
  Report Type: 
  Country: None (occurrence: None)
  Receive Date: 20101007
  Receipt Date: 20100709
  Transmission Date: 20110411
  Serious: No
  Sender: FDA-Public Use
  Company Number: 1000015020

PATIENT
  Age: 70 Year
  Sex: Female

DRUGS (4)
  1. BYSTOLIC [Suspect]
     Indication: SINUS TACHYCARDIA
     Dosage: 5 MG (5 MG, 1 IN 1 D), ORAL
     Route: 048
  2. EVISTA [Concomitant]
  3. VALTREX [Concomitant]
  4. ASMANEX TWISTHALER [Concomitant]

REACTIONS (2)
  - ABNORMAL SENSATION IN EYE [None]
  - PALPITATIONS [None]
